FAERS Safety Report 8238457-0 (Version None)
Quarter: 2012Q1

REPORT INFORMATION
  Report Type: 
  Country: None (occurrence: None)
  Receive Date: 20120327
  Receipt Date: 20120319
  Transmission Date: 20120608
  Serious: Yes (Other)
  Sender: FDA-Public Use
  Company Number: US-BAYER-2011-107507

PATIENT
  Age: 17 Year
  Sex: Female

DRUGS (7)
  1. TRAZODONE HCL [Concomitant]
     Dosage: 50 MG, UNK
     Route: 048
     Dates: start: 20071029
  2. YAZ [Suspect]
     Indication: MENSTRUAL CYCLE MANAGEMENT
  3. CITALOPRAM HYDROBROMIDE [Concomitant]
     Dosage: 20 MG, UNK
     Route: 048
     Dates: start: 20071029
  4. SULFAMETHOXAZOLE AND TRIMETHOPRIM DOUBLE STRENGTH [Concomitant]
     Dosage: 800-160 ORAL
     Dates: start: 20071231
  5. YAZ [Suspect]
     Indication: CONTRACEPTION
     Dosage: UNK
     Route: 048
     Dates: start: 20071101, end: 20080901
  6. YAZ [Suspect]
     Indication: PREMENSTRUAL SYNDROME
  7. OXCARBAZEPINE [Concomitant]
     Dosage: 150 MG, UNK
     Route: 048
     Dates: start: 20071105

REACTIONS (9)
  - GALLBLADDER DISORDER [None]
  - INJURY [None]
  - PAIN [None]
  - NAUSEA [None]
  - EMOTIONAL DISTRESS [None]
  - DIARRHOEA [None]
  - ABDOMINAL PAIN UPPER [None]
  - CHOLECYSTITIS CHRONIC [None]
  - BILIARY DYSKINESIA [None]
